FAERS Safety Report 6079376-8 (Version None)
Quarter: 2009Q1

REPORT INFORMATION
  Report Type: 
  Country: None (occurrence: None)
  Receive Date: 20090216
  Receipt Date: 20090212
  Transmission Date: 20090719
  Serious: Yes (Death, Life-Threatening)
  Sender: FDA-Public Use
  Company Number: US-ASTRAZENECA-2009UW02688

PATIENT
  Age: 57 Year
  Sex: Male

DRUGS (5)
  1. SYMBICORT [Suspect]
     Indication: BRONCHITIS
     Dosage: 160/4.5 UG
     Route: 055
  2. SYMBICORT [Suspect]
     Indication: UPPER RESPIRATORY TRACT INFECTION
     Dosage: 160/4.5 UG
     Route: 055
  3. SYMBICORT [Suspect]
     Indication: COUGH
     Dosage: 160/4.5 UG
     Route: 055
  4. SYMBICORT [Suspect]
     Indication: BRONCHOSPASM
     Dosage: 160/4.5 UG
     Route: 055
  5. DECONGESTANT [Suspect]
     Indication: BRONCHITIS
     Route: 065

REACTIONS (1)
  - SUDDEN DEATH [None]
